FAERS Safety Report 9135274 (Version 4)
Quarter: 2014Q1

REPORT INFORMATION
  Report Type: Report from Study
  Country: JP (occurrence: JP)
  Receive Date: 20130304
  Receipt Date: 20140312
  Transmission Date: 20141002
  Serious: Yes (Hospitalization)
  Sender: FDA-Public Use
  Company Number: JP-ASTRAZENECA-2013SE13490

PATIENT
  Age: 10964 Day
  Sex: Female
  Weight: 56 kg

DRUGS (4)
  1. MEDI-546 [Suspect]
     Indication: SYSTEMIC LUPUS ERYTHEMATOSUS
     Route: 042
     Dates: start: 20130219, end: 20140120
  2. NEXIUM [Suspect]
     Indication: GASTRITIS PROPHYLAXIS
     Route: 048
  3. PREDONINE [Suspect]
     Indication: SYSTEMIC LUPUS ERYTHEMATOSUS
     Route: 048
     Dates: start: 20121210
  4. EDIROL [Suspect]
     Indication: OSTEOPOROSIS
     Route: 048

REACTIONS (2)
  - Lymphadenopathy [Recovered/Resolved]
  - Chest pain [Not Recovered/Not Resolved]
